FAERS Safety Report 9200674 (Version 1)
Quarter: 2013Q1

REPORT INFORMATION
  Report Type: Spontaneous
  Country: IT (occurrence: IT)
  Receive Date: 20130331
  Receipt Date: 20130331
  Transmission Date: 20140127
  Serious: Yes (Other)
  Sender: FDA-Public Use
  Company Number: IT-TEVA-394054ISR

PATIENT
  Age: 76 Year
  Sex: Male

DRUGS (4)
  1. AMOXICILLIN [Suspect]
     Indication: OROPHARYNGEAL PAIN
     Dosage: 2 GRAM DAILY;
     Route: 048
     Dates: start: 20130127, end: 20130130
  2. DELTACORTENE [Suspect]
     Indication: OROPHARYNGEAL PAIN
     Dosage: 1 DOSAGE FORMS DAILY;
     Route: 048
     Dates: start: 20130127, end: 20130130
  3. CARDIOASPIRIN [Concomitant]
  4. RAMIPRIL [Concomitant]

REACTIONS (4)
  - Dyspnoea [Recovering/Resolving]
  - Face oedema [Recovering/Resolving]
  - Flushing [Recovering/Resolving]
  - Localised oedema [Recovering/Resolving]
